FAERS Safety Report 10097325 (Version 1)
Quarter: 2014Q2

REPORT INFORMATION
  Report Type: Spontaneous
  Country: US (occurrence: US)
  Receive Date: 20140423
  Receipt Date: 20140423
  Transmission Date: 20141212
  Serious: Yes (Other)
  Sender: FDA-Public Use
  Company Number: PHHY2014US046806

PATIENT
  Sex: 0

DRUGS (7)
  1. CARBOPLATIN [Suspect]
     Indication: MALIGNANT GLIOMA
  2. VINCRISTINE [Suspect]
     Indication: MALIGNANT GLIOMA
  3. VINBLASTINE [Suspect]
     Indication: MALIGNANT GLIOMA
  4. TEMOZOLOMIDE [Suspect]
     Indication: MALIGNANT GLIOMA
  5. O6-BENZYLGUANINE [Suspect]
     Indication: MALIGNANT GLIOMA
  6. PEMETREXED [Suspect]
     Indication: MALIGNANT GLIOMA
  7. LENALIDOMIDE [Suspect]
     Indication: MALIGNANT GLIOMA

REACTIONS (4)
  - Posterior reversible encephalopathy syndrome [Unknown]
  - Visual impairment [Unknown]
  - Malignant glioma [Unknown]
  - Malignant neoplasm progression [Unknown]
